FAERS Safety Report 8500514-9 (Version None)
Quarter: 2012Q3

REPORT INFORMATION
  Report Type: 
  Country: None (occurrence: None)
  Receive Date: 20120710
  Receipt Date: 20111107
  Transmission Date: 20120928
  Serious: Yes (Congenital Anomaly)
  Sender: FDA-Public Use
  Company Number: FR-ROCHE-1014877

PATIENT
  Sex: Female

DRUGS (4)
  1. INVIRASE [Suspect]
     Indication: PRODUCT USED FOR UNKNOWN INDICATION
  2. ABACAVIR SULFATE AND LAMIVUDINE [Suspect]
     Indication: PRODUCT USED FOR UNKNOWN INDICATION
  3. LOPINAVIR AND RITONAVIR [Suspect]
     Indication: PRODUCT USED FOR UNKNOWN INDICATION
  4. EMTRICITABINE AND TENOFOVIR DISOPROXIL FUMARATE [Suspect]
     Indication: PRODUCT USED FOR UNKNOWN INDICATION

REACTIONS (2)
  - HYPOSPADIAS [None]
  - MATERNAL EXPOSURE TIMING UNSPECIFIED [None]
